FAERS Safety Report 13591230 (Version 5)
Quarter: 2018Q2

REPORT INFORMATION
  Report Type: Spontaneous
  Country: JP (occurrence: JP)
  Receive Date: 20170530
  Receipt Date: 20180409
  Transmission Date: 20180711
  Serious: Yes (Other)
  Sender: FDA-Public Use
  Company Number: JP-PFIZER INC-2017138228

PATIENT
  Age: 34 Year
  Sex: Male

DRUGS (3)
  1. LYRICA [Suspect]
     Active Substance: PREGABALIN
     Indication: INTERVERTEBRAL DISC PROTRUSION
     Dosage: 75 MG, 2X/DAY
     Route: 048
     Dates: start: 20170303, end: 20170329
  2. LYRICA [Suspect]
     Active Substance: PREGABALIN
     Indication: NEURALGIA
  3. CELECOX [Suspect]
     Active Substance: CELECOXIB
     Indication: INTERVERTEBRAL DISC PROTRUSION
     Dosage: 100 MG, 2X/DAY
     Route: 048
     Dates: start: 20170327

REACTIONS (5)
  - Speech disorder [Recovering/Resolving]
  - Withdrawal syndrome [Unknown]
  - Feeling abnormal [Recovered/Resolved with Sequelae]
  - Dysarthria [Recovering/Resolving]
  - Mental impairment [Unknown]

NARRATIVE: CASE EVENT DATE: 20170323
